FAERS Safety Report 16324006 (Version 1)
Quarter: 2019Q2

REPORT INFORMATION
  Report Type: Spontaneous
  Country: GB (occurrence: GB)
  Receive Date: 20190517
  Receipt Date: 20190517
  Transmission Date: 20190711
  Serious: Yes (Other)
  Sender: FDA-Public Use
  Company Number: GB-TEVA-2019-GB-1050793

PATIENT
  Age: 55 Year
  Sex: Female

DRUGS (2)
  1. CALCIUM AND COLECALCIFEROL [Concomitant]
  2. ALENDRONIC ACID [Suspect]
     Active Substance: ALENDRONIC ACID
     Indication: OSTEOPOROSIS
     Route: 048
     Dates: start: 20171130, end: 20190305

REACTIONS (1)
  - Suicidal ideation [Recovering/Resolving]
